FAERS Safety Report 7742387-8 (Version None)
Quarter: 2011Q3

REPORT INFORMATION
  Report Type: 
  Country: None (occurrence: None)
  Receive Date: 20110912
  Receipt Date: 20110211
  Transmission Date: 20111222
  Serious: No
  Sender: FDA-Public Use
  Company Number: US-BAYER-2011-014878

PATIENT
  Age: 24 Year
  Sex: Female

DRUGS (1)
  1. MIRENA [Suspect]
     Dosage: UNK
     Dates: start: 20110209, end: 20110209

REACTIONS (2)
  - POST PROCEDURAL HAEMORRHAGE [None]
  - DEVICE DIFFICULT TO USE [None]
